FAERS Safety Report 7618880-5 (Version None)
Quarter: 2011Q3

REPORT INFORMATION
  Report Type: 
  Country: None (occurrence: None)
  Receive Date: 20110718
  Receipt Date: 20110705
  Transmission Date: 20111222
  Serious: Yes (Other)
  Sender: FDA-Public Use
  Company Number: US-AMGEN-USASP2011027363

PATIENT
  Age: 76 Year
  Sex: Female

DRUGS (2)
  1. ARANESP [Suspect]
     Indication: RENAL DISORDER
     Dosage: UNK
     Dates: start: 20110101
  2. PROCRIT [Suspect]
     Indication: RENAL DISORDER

REACTIONS (4)
  - LOOSE TOOTH [None]
  - DEVICE ISSUE [None]
  - DRUG DOSE OMISSION [None]
  - TOOTH FRACTURE [None]
